FAERS Safety Report 7971046-1 (Version None)
Quarter: 2011Q4

REPORT INFORMATION
  Report Type: 
  Country: None (occurrence: None)
  Receive Date: 20111212
  Receipt Date: 20111212
  Transmission Date: 20120403
  Serious: Yes (Other)
  Sender: FDA-Public Use
  Company Number: None

PATIENT
  Age: 59 Year
  Sex: Male

DRUGS (2)
  1. IFOSFAMIDE [Suspect]
     Indication: B-CELL LYMPHOMA
     Dosage: IFOSFAMIDE
     Route: 041
     Dates: start: 20110817, end: 20110817
  2. MESNA [Concomitant]
     Indication: B-CELL LYMPHOMA
     Dosage: MESNA
     Route: 041
     Dates: start: 20110817, end: 20110817

REACTIONS (2)
  - VOMITING [None]
  - REFUSAL OF TREATMENT BY PATIENT [None]
